FAERS Safety Report 19442788 (Version 1)
Quarter: 2021Q2

REPORT INFORMATION
  Report Type: Spontaneous
  Country: US (occurrence: US)
  Receive Date: 20210621
  Receipt Date: 20210621
  Transmission Date: 20210717
  Serious: Yes (Other)
  Sender: FDA-Public Use
  Company Number: US-TEVA-2021-US-1923952

PATIENT
  Sex: Male

DRUGS (1)
  1. COPAXONE [Suspect]
     Active Substance: GLATIRAMER ACETATE
     Dosage: FORM STRENGTH AND DOSE: UNKNOWN
     Route: 065

REACTIONS (9)
  - Dizziness [Unknown]
  - Fatigue [Unknown]
  - Dyspnoea [Unknown]
  - Euphoric mood [Unknown]
  - Seizure [Unknown]
  - Myalgia [Unknown]
  - Injection site swelling [Unknown]
  - Injection site pain [Unknown]
  - Back pain [Unknown]
